FAERS Safety Report 24242296 (Version 6)
Quarter: 2024Q3

REPORT INFORMATION
  Report Type: Spontaneous
  Country: US (occurrence: US)
  Receive Date: 20240823
  Receipt Date: 20240917
  Transmission Date: 20241017
  Serious: Yes (Other)
  Sender: PFIZER
  Company Number: US-PFIZER INC-202400107540

PATIENT
  Age: 84 Year
  Sex: Male

DRUGS (2)
  1. TIKOSYN [Suspect]
     Active Substance: DOFETILIDE
     Dosage: 0.125 FOUR PILLS
  2. TIKOSYN [Suspect]
     Active Substance: DOFETILIDE
     Dosage: 250 UG, EVERY 12 HOURS (IF 250 UG CAPSULE, CAN USE 125 UG 2 TABS TWICE DAILY)

REACTIONS (1)
  - Implantable defibrillator insertion [Unknown]
